FAERS Safety Report 5760815-4 (Version None)
Quarter: 2008Q2

REPORT INFORMATION
  Report Type: 
  Country: None (occurrence: None)
  Receive Date: 20080606
  Receipt Date: 20080528
  Transmission Date: 20081010
  Serious: Yes (Death)
  Sender: FDA-Public Use
  Company Number: HR-NOVOPROD-269887

PATIENT
  Sex: Female
  Weight: 0.66 kg

DRUGS (2)
  1. LEVEMIR [Suspect]
     Dosage: 15+13 IU
     Route: 064
     Dates: start: 20060317, end: 20070709
  2. NOVORAPID [Suspect]
     Dosage: 8+6+5 IU
     Route: 064
     Dates: start: 20031003

REACTIONS (2)
  - PLACENTAL DISORDER [None]
  - PREMATURE LABOUR [None]
